FAERS Safety Report 9228242 (Version 2)
Quarter: 2013Q2

REPORT INFORMATION
  Report Type: Spontaneous
  Country: US (occurrence: US)
  Receive Date: 20130412
  Receipt Date: 20130503
  Transmission Date: 20140414
  Serious: Yes (Death, Hospitalization)
  Sender: FDA-Public Use
  Company Number: US-GILEAD-2013-0073298

PATIENT
  Sex: Male

DRUGS (3)
  1. LETAIRIS [Suspect]
     Indication: PORTOPULMONARY HYPERTENSION
     Dosage: 10 MG, QD
     Dates: start: 20081001
  2. LETAIRIS [Suspect]
     Indication: PULMONARY HYPERTENSION
  3. VIAGRA [Concomitant]

REACTIONS (1)
  - Hepatic failure [Fatal]
